FAERS Safety Report 7261516-6 (Version None)
Quarter: 2011Q1

REPORT INFORMATION
  Report Type: 
  Country: None (occurrence: None)
  Receive Date: 20110130
  Receipt Date: 20100929
  Transmission Date: 20110831
  Serious: No
  Sender: FDA-Public Use
  Company Number: US-ABBOTT-10P-163-0675209-00

PATIENT
  Sex: Male
  Weight: 163.44 kg

DRUGS (16)
  1. MULTI-VITAMIN [Concomitant]
     Indication: VITAMIN SUPPLEMENTATION
  2. ALBUTEROL [Concomitant]
     Indication: ASTHMA
  3. LASIX [Concomitant]
     Indication: FLUID RETENTION
  4. METHOTREXATE [Concomitant]
     Indication: PSORIASIS
  5. PERIDEX [Concomitant]
     Indication: STOMATITIS
     Dosage: MOUTH WASH
     Route: 050
  6. FLONASE [Concomitant]
     Indication: HYPERSENSITIVITY
  7. ADVAIR [Concomitant]
     Indication: ASTHMA
  8. LISINOPRIL [Concomitant]
     Indication: HYPERTENSION
  9. POTASSIUM [Concomitant]
     Indication: MINERAL SUPPLEMENTATION
  10. HUMIRA [Suspect]
     Indication: PSORIASIS
     Dates: start: 20080101, end: 20100301
  11. HUMIRA [Suspect]
     Dates: start: 20100301, end: 20100929
  12. FOLIC ACID [Concomitant]
     Indication: VITAMIN SUPPLEMENTATION
  13. LOVASTATIN [Concomitant]
     Indication: BLOOD CHOLESTEROL INCREASED
  14. VITAMIN B-12 [Concomitant]
     Indication: VITAMIN SUPPLEMENTATION
  15. TRIAMCINOLONE [Concomitant]
     Indication: PSORIASIS
     Route: 061
  16. FISH OIL [Concomitant]
     Indication: VITAMIN SUPPLEMENTATION

REACTIONS (1)
  - DRUG INEFFECTIVE [None]
